FAERS Safety Report 4790077-6 (Version None)
Quarter: 2005Q3

REPORT INFORMATION
  Report Type: 
  Country: None (occurrence: None)
  Receive Date: 20050914
  Receipt Date: 20041213
  Transmission Date: 20060218
  Serious: Yes (Death)
  Sender: FDA-Public Use
  Company Number: 163-20785-04120460

PATIENT

DRUGS (2)
  1. THALIDOMIDE (THALIDOMIDE) (CAPSULES) [Suspect]
     Indication: RENAL CELL CARCINOMA STAGE UNSPECIFIED
     Dosage: 100 MG ESCALATED TO 1000 MG OR GR. 3-4 TOXICITY, QHS, ORAL
     Route: 048
  2. INTERFERON-ALPHA (INTERFERON ALFA) (UNKNOWN) [Suspect]
     Indication: RENAL CELL CARCINOMA STAGE UNSPECIFIED
     Dosage: 5 MILLION UNITS, 3X PER WEEK, SUBCUTANEOUS
     Route: 058

REACTIONS (1)
  - DEATH [None]
